FAERS Safety Report 22243180 (Version 1)
Quarter: 2023Q2

REPORT INFORMATION
  Report Type: Spontaneous
  Country: MX (occurrence: MX)
  Receive Date: 20230424
  Receipt Date: 20230424
  Transmission Date: 20230721
  Serious: Yes (Life-Threatening, Hospitalization, Other)
  Sender: FDA-Public Use
  Company Number: MX-SUN PHARMACEUTICAL INDUSTRIES LTD-2023R1-385592

PATIENT
  Sex: Male
  Weight: 1.75 kg

DRUGS (3)
  1. FOLIC ACID [Suspect]
     Active Substance: FOLIC ACID
     Indication: Prenatal care
     Dosage: UNK
     Route: 064
  2. UNSPECIFIED INGREDIENT [Suspect]
     Active Substance: UNSPECIFIED INGREDIENT
     Indication: Urinary tract infection
     Dosage: UNK
     Route: 064
  3. UNSPECIFIED INGREDIENT [Suspect]
     Active Substance: UNSPECIFIED INGREDIENT
     Indication: Cervicitis

REACTIONS (5)
  - Gastroschisis [Unknown]
  - Congenital multiplex arthrogryposis [Recovering/Resolving]
  - Foetal exposure during pregnancy [Unknown]
  - Premature baby [Unknown]
  - Low birth weight baby [Unknown]
